FAERS Safety Report 16074609 (Version 1)
Quarter: 2019Q1

REPORT INFORMATION
  Report Type: Spontaneous
  Country: US (occurrence: US)
  Receive Date: 20190314
  Receipt Date: 20190314
  Transmission Date: 20190418
  Serious: No
  Sender: FDA-Public Use
  Company Number: PHEH2019US010563

PATIENT
  Sex: Female

DRUGS (2)
  1. COSENTYX [Suspect]
     Active Substance: SECUKINUMAB
     Indication: MYALGIA
     Dosage: 300 MG, UNK
     Route: 058
     Dates: end: 20190228
  2. COSENTYX [Suspect]
     Active Substance: SECUKINUMAB
     Indication: MUSCULAR WEAKNESS

REACTIONS (2)
  - Myalgia [Unknown]
  - Product use in unapproved indication [Unknown]
